FAERS Safety Report 15654758 (Version 1)
Quarter: 2018Q4

REPORT INFORMATION
  Report Type: Spontaneous
  Country: CA (occurrence: CA)
  Receive Date: 20181126
  Receipt Date: 20181126
  Transmission Date: 20190205
  Serious: Yes (Other)
  Sender: FDA-Public Use
  Company Number: CA-TEVA-2018-CA-979962

PATIENT
  Sex: Female

DRUGS (1)
  1. GABAPENTIN. [Suspect]
     Active Substance: GABAPENTIN
     Indication: SPINAL CORD INJURY
     Dosage: 400 MILLIGRAM DAILY;
     Route: 065

REACTIONS (4)
  - Diarrhoea [Not Recovered/Not Resolved]
  - Somnolence [Not Recovered/Not Resolved]
  - Blindness [Not Recovered/Not Resolved]
  - Product use in unapproved indication [Not Recovered/Not Resolved]
